FAERS Safety Report 5793934-7 (Version None)
Quarter: 2008Q2

REPORT INFORMATION
  Report Type: 
  Country: None (occurrence: None)
  Receive Date: 20080627
  Receipt Date: 20080618
  Transmission Date: 20081010
  Serious: Yes (Death, Hospitalization, Other)
  Sender: FDA-Public Use
  Company Number: DE-PFIZER INC-2006032710

PATIENT
  Sex: Female
  Weight: 55 kg

DRUGS (5)
  1. SU-011,248 [Suspect]
     Indication: METASTATIC RENAL CELL CARCINOMA
     Route: 048
     Dates: start: 20060201, end: 20060302
  2. FENTANYL [Interacting]
     Indication: PAIN
     Route: 062
     Dates: start: 20051001, end: 20060304
  3. AROMASIN [Concomitant]
     Route: 048
  4. ALIZAPRIDE [Concomitant]
     Route: 048
  5. ZOLEDRONIC ACID [Concomitant]
     Route: 048

REACTIONS (5)
  - DEVICE DISLOCATION [None]
  - DRUG INTERACTION [None]
  - HAEMORRHAGE [None]
  - RESPIRATORY FAILURE [None]
  - SOMNOLENCE [None]
